FAERS Safety Report 13650958 (Version 1)
Quarter: 2017Q2

REPORT INFORMATION
  Report Type: Spontaneous
  Country: BR (occurrence: BR)
  Receive Date: 20170614
  Receipt Date: 20170614
  Transmission Date: 20170830
  Serious: Yes (Other)
  Sender: FDA-Public Use
  Company Number: BR-AMGEN-BRASP2017086982

PATIENT
  Age: 57 Year
  Sex: Female
  Weight: 57 kg

DRUGS (5)
  1. LOSARTAN. [Concomitant]
     Active Substance: LOSARTAN
     Dosage: 50 MG, Q12H
  2. AMLODIPINE [Concomitant]
     Active Substance: AMLODIPINE BESYLATE
     Dosage: 5 MG, QD
  3. MIMPARA [Suspect]
     Active Substance: CINACALCET HYDROCHLORIDE
     Indication: BLOOD CALCIUM INCREASED
     Dosage: 90 MG, QD (30 MG 3 TABLETS AT THE LUNCH TIME)
     Route: 048
     Dates: start: 201612, end: 201702
  4. HYDROCHLOROTHIAZIDE. [Concomitant]
     Active Substance: HYDROCHLOROTHIAZIDE
     Dosage: 200 MG, QD (NIGHT)
  5. ATENOLOL. [Concomitant]
     Active Substance: ATENOLOL
     Dosage: 50 MG, Q12H

REACTIONS (7)
  - Blood phosphorus increased [Not Recovered/Not Resolved]
  - Off label use [Unknown]
  - Abasia [Not Recovered/Not Resolved]
  - Osteoporosis [Not Recovered/Not Resolved]
  - Incorrect dose administered [Not Recovered/Not Resolved]
  - Parathyroid disorder [Not Recovered/Not Resolved]
  - Chronic kidney disease [Unknown]

NARRATIVE: CASE EVENT DATE: 2017
